FAERS Safety Report 24736208 (Version 1)
Quarter: 2024Q4

REPORT INFORMATION
  Report Type: Spontaneous
  Country: US (occurrence: None)
  Receive Date: 20241216
  Receipt Date: 20241216
  Transmission Date: 20250115
  Serious: Yes (Other)
  Sender: NODEN PHARMA
  Company Number: US-Noden Pharma DAC-NOD202408-000110

PATIENT

DRUGS (1)
  1. TEKTURNA [Suspect]
     Active Substance: ALISKIREN HEMIFUMARATE
     Indication: Product used for unknown indication
     Dosage: UNKNOWN

REACTIONS (1)
  - Swollen tongue [Unknown]
